FAERS Safety Report 18686866 (Version 1)
Quarter: 2020Q4

REPORT INFORMATION
  Report Type: Spontaneous
  Country: US (occurrence: US)
  Receive Date: 20201230
  Receipt Date: 20201230
  Transmission Date: 20210114
  Serious: Yes (Hospitalization, Other)
  Sender: FDA-Public Use
  Company Number: US-HETERO-HET2020US01417

PATIENT
  Age: 37 Year
  Sex: Male

DRUGS (2)
  1. OMEPRAZOLE. [Suspect]
     Active Substance: OMEPRAZOLE
     Indication: INTESTINAL METAPLASIA
  2. OMEPRAZOLE. [Suspect]
     Active Substance: OMEPRAZOLE
     Indication: CHRONIC GASTRITIS
     Dosage: 20 MILLIGRAM, O.D.
     Route: 065

REACTIONS (4)
  - Gastric cancer [Unknown]
  - Iron deficiency anaemia [Unknown]
  - Neuroendocrine tumour [Unknown]
  - Gastrointestinal haemorrhage [Unknown]
